FAERS Safety Report 6080011-3 (Version None)
Quarter: 2009Q1

REPORT INFORMATION
  Report Type: 
  Country: None (occurrence: None)
  Receive Date: 20090217
  Receipt Date: 20090216
  Transmission Date: 20090719
  Serious: Yes (Hospitalization, Other)
  Sender: FDA-Public Use
  Company Number: JP-ELI_LILLY_AND_COMPANY-JP200902002520

PATIENT
  Age: 75 Year
  Sex: Male
  Weight: 44 kg

DRUGS (5)
  1. GEMZAR [Suspect]
     Indication: PANCREATIC CARCINOMA
     Dosage: 1300 MG, OTHER
     Route: 042
     Dates: start: 20081028
  2. GEMZAR [Suspect]
     Dosage: 1200 MG, OTHER
     Route: 042
     Dates: end: 20090113
  3. TANATRIL [Concomitant]
     Indication: HYPERTENSION
     Route: 048
  4. NORVASC [Concomitant]
     Indication: HYPERTENSION
     Route: 048
  5. MAGNESIUM OXIDE [Concomitant]
     Route: 048

REACTIONS (1)
  - INTERSTITIAL LUNG DISEASE [None]
